FAERS Safety Report 9156188 (Version 1)
Quarter: 2013Q1

REPORT INFORMATION
  Report Type: Spontaneous
  Country: US (occurrence: US)
  Receive Date: 20130123
  Receipt Date: 20130123
  Transmission Date: 20140127
  Serious: No
  Sender: FDA-Public Use
  Company Number: US-BRACCO-007764

PATIENT
  Age: 42 Year
  Sex: Male

DRUGS (2)
  1. MULTIHANCE [Suspect]
     Indication: NUCLEAR MAGNETIC RESONANCE IMAGING
     Dosage: LOT NUMBERS: 31-DEC-2014 AND 30-SEP-2014 RESPECTIVELY
     Route: 042
     Dates: start: 20120322, end: 20120322
  2. MULTIHANCE [Suspect]
     Indication: NEOPLASM
     Dosage: LOT NUMBERS: 31-DEC-2014 AND 30-SEP-2014 RESPECTIVELY
     Route: 042
     Dates: start: 20120322, end: 20120322

REACTIONS (4)
  - Dysphagia [Recovered/Resolved]
  - Cough [Recovered/Resolved]
  - Sneezing [Recovered/Resolved]
  - Lacrimation increased [Recovered/Resolved]
